FAERS Safety Report 7173668-7 (Version None)
Quarter: 2010Q4

REPORT INFORMATION
  Report Type: 
  Country: None (occurrence: None)
  Receive Date: 20101215
  Receipt Date: 20101215
  Transmission Date: 20110411
  Serious: Yes (Other)
  Sender: FDA-Public Use
  Company Number: None

PATIENT
  Sex: Male
  Weight: 96.1626 kg

DRUGS (1)
  1. DAPSONE [Suspect]
     Indication: INFECTION
     Dosage: 25 MG 2X DAY 30 DAYS  (OCT 5 - 26TH APPROX)

REACTIONS (6)
  - BLISTER [None]
  - CHILLS [None]
  - ERYTHEMA [None]
  - OEDEMA PERIPHERAL [None]
  - PAIN OF SKIN [None]
  - SKIN EXFOLIATION [None]
